FAERS Safety Report 6837736-9 (Version None)
Quarter: 2010Q3

REPORT INFORMATION
  Report Type: 
  Country: None (occurrence: None)
  Receive Date: 20100713
  Receipt Date: 20070521
  Transmission Date: 20110219
  Serious: No
  Sender: FDA-Public Use
  Company Number: US-PFIZER INC-2007041976

PATIENT
  Sex: Female
  Weight: 90.7 kg

DRUGS (12)
  1. CHANTIX [Suspect]
     Indication: SMOKING CESSATION THERAPY
     Dates: start: 20070521
  2. ASPIRINE [Concomitant]
  3. KLONOPIN [Concomitant]
  4. LEXAPRO [Concomitant]
  5. LITHIUM [Concomitant]
  6. WELLBUTRIN [Concomitant]
  7. LEVOTHYROXINE [Concomitant]
     Indication: THYROID DISORDER
  8. LASIX [Concomitant]
  9. POTASSIUM [Concomitant]
  10. CENTRUM SILVER [Concomitant]
  11. VITAMIN D [Concomitant]
  12. CALCIUM [Concomitant]

REACTIONS (2)
  - FACIAL PAIN [None]
  - PAIN IN JAW [None]
